FAERS Safety Report 16867745 (Version 1)
Quarter: 2019Q3

REPORT INFORMATION
  Report Type: Spontaneous
  Country: US (occurrence: US)
  Receive Date: 20190806
  Receipt Date: 20190806
  Transmission Date: 20191007
  Serious: Yes (Hospitalization)
  Sender: FDA-Public Use
  Company Number: None

PATIENT
  Age: 26 Year
  Sex: Female

DRUGS (1)
  1. MIRENA [Suspect]
     Active Substance: LEVONORGESTREL

REACTIONS (6)
  - Seizure [None]
  - Menopausal symptoms [None]
  - Impaired work ability [None]
  - Ovarian cyst [None]
  - Mass [None]
  - Pain [None]

NARRATIVE: CASE EVENT DATE: 20160801
